FAERS Safety Report 4356171-9 (Version None)
Quarter: 2004Q2

REPORT INFORMATION
  Report Type: 
  Country: None (occurrence: None)
  Receive Date: 20040506
  Receipt Date: 20040427
  Transmission Date: 20050107
  Serious: Yes (Death)
  Sender: FDA-Public Use
  Company Number: JP-JNJFOC-20031005985

PATIENT
  Age: 71 Year
  Sex: Male

DRUGS (4)
  1. FENTANYL [Suspect]
     Indication: CANCER PAIN
     Dosage: 2.5 MG, 1 IN 72 HOUR, TRANSDERMAL
     Route: 062
     Dates: start: 20031009, end: 20031021
  2. MORPHINE [Concomitant]
  3. PROCHLORPERAZINE MALEATE (PROCHLORPERAZINE MALEATE) [Concomitant]
  4. SODIUM PICOSULFATE (SODIUM PICOSULFATE) [Concomitant]

REACTIONS (1)
  - CARDIAC FAILURE [None]
